FAERS Safety Report 6434922-7 (Version None)
Quarter: 2009Q4

REPORT INFORMATION
  Report Type: 
  Country: None (occurrence: None)
  Receive Date: 20091109
  Receipt Date: 20091109
  Transmission Date: 20100525
  Serious: Yes (Hospitalization)
  Sender: FDA-Public Use
  Company Number: None

PATIENT
  Age: 53 Year
  Sex: Male
  Weight: 114.76 kg

DRUGS (4)
  1. SIMAVASTATIN [Suspect]
     Indication: DIABETES MELLITUS
     Dosage: 60 MG EVERY DAY PO; 600 MG BID PO
     Route: 048
     Dates: start: 20090723
  2. SIMAVASTATIN [Suspect]
     Indication: HYPERLIPIDAEMIA
     Dosage: 60 MG EVERY DAY PO; 600 MG BID PO
     Route: 048
     Dates: start: 20090723
  3. SIMAVASTATIN [Suspect]
     Indication: DIABETES MELLITUS
     Dosage: 60 MG EVERY DAY PO; 600 MG BID PO
     Route: 048
     Dates: start: 20090723
  4. SIMAVASTATIN [Suspect]
     Indication: HYPERLIPIDAEMIA
     Dosage: 60 MG EVERY DAY PO; 600 MG BID PO
     Route: 048
     Dates: start: 20090723

REACTIONS (2)
  - RENAL FAILURE ACUTE [None]
  - RHABDOMYOLYSIS [None]
